FAERS Safety Report 16855130 (Version 1)
Quarter: 2019Q3

REPORT INFORMATION
  Report Type: Spontaneous
  Country: US (occurrence: US)
  Receive Date: 20190926
  Receipt Date: 20190926
  Transmission Date: 20191005
  Serious: No
  Sender: FDA-Public Use
  Company Number: US-GLENMARK PHARMACEUTICALS-2019GMK042518

PATIENT

DRUGS (2)
  1. DOXYCYCLINE. [Concomitant]
     Active Substance: DOXYCYCLINE
     Indication: LYME DISEASE
     Dosage: UNK
     Route: 065
  2. ONDANSETRON TABLETS USP [Suspect]
     Active Substance: ONDANSETRON
     Indication: NAUSEA
     Dosage: 4 MG, BID
     Route: 048
     Dates: start: 20190730

REACTIONS (3)
  - Nausea [Recovered/Resolved]
  - Product use in unapproved indication [Unknown]
  - Malaise [Recovered/Resolved]

NARRATIVE: CASE EVENT DATE: 201907
